FAERS Safety Report 19458649 (Version 3)
Quarter: 2021Q3

REPORT INFORMATION
  Report Type: Report from Study
  Country: CA (occurrence: CA)
  Receive Date: 20210624
  Receipt Date: 20210704
  Transmission Date: 20211014
  Serious: Yes (Other)
  Sender: FDA-Public Use
  Company Number: CA-BIOGEN-2021BI01021272

PATIENT
  Age: 14 Year
  Sex: Female

DRUGS (1)
  1. TYSABRI [Suspect]
     Active Substance: NATALIZUMAB
     Indication: MULTIPLE SCLEROSIS
     Route: 042
     Dates: start: 20160104

REACTIONS (8)
  - Off label use [Recovered/Resolved]
  - Hypophagia [Unknown]
  - Nausea [Unknown]
  - Appendix disorder [Unknown]
  - Product dose omission issue [Unknown]
  - Diarrhoea [Not Recovered/Not Resolved]
  - Crohn^s disease [Unknown]
  - Abdominal pain [Not Recovered/Not Resolved]

NARRATIVE: CASE EVENT DATE: 20160401
